FAERS Safety Report 18627136 (Version 1)
Quarter: 2020Q4

REPORT INFORMATION
  Report Type: Spontaneous
  Country: US (occurrence: US)
  Receive Date: 20201217
  Receipt Date: 20201217
  Transmission Date: 20210114
  Serious: Yes (Other)
  Sender: FDA-Public Use
  Company Number: US-CADILA HEALTHCARE LIMITED-US-ZYDUS-059053

PATIENT

DRUGS (2)
  1. DIVALPROEX [Suspect]
     Active Substance: DIVALPROEX SODIUM
     Indication: AGITATION
     Dosage: UNK, BID (125 MG DURING THE DAY AND 375 MG AT BEDTIME)
     Route: 048
  2. QUETIAPINE. [Suspect]
     Active Substance: QUETIAPINE
     Indication: AGITATION
     Dosage: UNK, BID (25 MG DURING THE DAY AND 75 MG AT NIGHT)
     Route: 048

REACTIONS (2)
  - Hyperammonaemia [Unknown]
  - Catatonia [Recovered/Resolved]
